FAERS Safety Report 6303599-3 (Version None)
Quarter: 2009Q3

REPORT INFORMATION
  Report Type: 
  Country: None (occurrence: None)
  Receive Date: 20090807
  Receipt Date: 20090807
  Transmission Date: 20100115
  Serious: Yes (Other)
  Sender: FDA-Public Use
  Company Number: None

PATIENT
  Age: 51 Year
  Sex: Male
  Weight: 130.1823 kg

DRUGS (4)
  1. ORENCIA [Suspect]
     Indication: POLYARTHRITIS
     Dosage: 1000 MG WEEK 0, 2, 4  IV DRIP; 500 MG EVERY 4 WEEKS IV DRIP
     Route: 041
     Dates: start: 20090422, end: 20090722
  2. METHOTREXATE [Concomitant]
  3. SULFASALAZINE, [Concomitant]
  4. PREDNISONE [Concomitant]

REACTIONS (1)
  - CELLULITIS [None]
